FAERS Safety Report 6472226-7 (Version None)
Quarter: 2009Q4

REPORT INFORMATION
  Report Type: 
  Country: None (occurrence: None)
  Receive Date: 20091130
  Receipt Date: 20091112
  Transmission Date: 20100525
  Serious: Yes (Hospitalization)
  Sender: FDA-Public Use
  Company Number: RENA-1000572

PATIENT
  Age: 60 Year
  Sex: Female
  Weight: 62 kg

DRUGS (5)
  1. RENVELA (SEVELAMER CARBONATE) POWDER FOR ORAL SUSPENSION [Suspect]
     Indication: HYPERPHOSPHATAEMIA
     Dosage: 2.4 G, QD, ORAL
     Route: 048
     Dates: start: 20090924
  2. L-THYROXINE (LEVOTHYROXINE) [Concomitant]
  3. DREISAVIT ASCORBIC ACID, CALCIUM PANTOTHENATE, FOLIC ACID, NICOTINAMID [Concomitant]
  4. FERRLECIT (FERRIC SODIUM CITRATE) [Concomitant]
  5. NEORECORMON (EPOTIN BETA) [Concomitant]

REACTIONS (5)
  - ADRENAL DISORDER [None]
  - NEPHROLITHIASIS [None]
  - OSTEOLYSIS [None]
  - RENAL DISORDER [None]
  - SUBILEUS [None]
